FAERS Safety Report 18241450 (Version 1)
Quarter: 2020Q3

REPORT INFORMATION
  Report Type: Other
  Country: CA (occurrence: CA)
  Receive Date: 20200908
  Receipt Date: 20200908
  Transmission Date: 20201103
  Serious: Yes (Other)
  Sender: FDA-Public Use
  Company Number: CA-PFIZER INC-2020344179

PATIENT
  Age: 24 Year
  Sex: Female

DRUGS (12)
  1. CARBOPLATIN. [Suspect]
     Active Substance: CARBOPLATIN
     Indication: OVARIAN GERM CELL TUMOUR
     Dosage: UNK
     Route: 065
  2. PACLITAXEL. [Concomitant]
     Active Substance: PACLITAXEL
     Indication: GERM CELL CANCER METASTATIC
  3. ETOPOSIDE. [Suspect]
     Active Substance: ETOPOSIDE
     Indication: GERM CELL CANCER METASTATIC
  4. CARBOPLATIN. [Suspect]
     Active Substance: CARBOPLATIN
     Indication: GERM CELL CANCER METASTATIC
  5. LUPRON [Concomitant]
     Active Substance: LEUPROLIDE ACETATE
     Indication: OVARIAN GERM CELL TUMOUR
     Dosage: UNK
  6. ETOPOSIDE. [Suspect]
     Active Substance: ETOPOSIDE
     Indication: OVARIAN GERM CELL TUMOUR
     Dosage: UNK
     Route: 065
  7. IFOSFAMIDE. [Concomitant]
     Active Substance: IFOSFAMIDE
     Indication: GERM CELL CANCER METASTATIC
  8. PACLITAXEL. [Concomitant]
     Active Substance: PACLITAXEL
     Indication: OVARIAN GERM CELL TUMOUR
     Dosage: UNK
  9. CISPLATIN. [Concomitant]
     Active Substance: CISPLATIN
     Indication: OVARIAN GERM CELL TUMOUR
     Dosage: UNK
  10. IFOSFAMIDE. [Concomitant]
     Active Substance: IFOSFAMIDE
     Indication: OVARIAN GERM CELL TUMOUR
     Dosage: UNK
  11. LUPRON [Concomitant]
     Active Substance: LEUPROLIDE ACETATE
     Indication: GERM CELL CANCER METASTATIC
  12. CISPLATIN. [Concomitant]
     Active Substance: CISPLATIN
     Indication: GERM CELL CANCER METASTATIC

REACTIONS (3)
  - Off label use [Unknown]
  - Product use in unapproved indication [Unknown]
  - Hyperplasia of thymic epithelium [Unknown]
